FAERS Safety Report 7757740-6 (Version None)
Quarter: 2011Q3

REPORT INFORMATION
  Report Type: 
  Country: None (occurrence: None)
  Receive Date: 20110916
  Receipt Date: 20101101
  Transmission Date: 20111222
  Serious: No
  Sender: FDA-Public Use
  Company Number: US-ALLERGAN-1014004US

PATIENT
  Age: 71 Year
  Sex: Female

DRUGS (1)
  1. ACUVAIL [Suspect]
     Indication: MACULAR OEDEMA
     Dosage: 1 GTT, BID
     Route: 047
     Dates: start: 20101013, end: 20101030

REACTIONS (7)
  - OCULAR HYPERAEMIA [None]
  - NAUSEA [None]
  - ASTHENIA [None]
  - VISION BLURRED [None]
  - HEADACHE [None]
  - HYDRONEPHROSIS [None]
  - EYE IRRITATION [None]
